FAERS Safety Report 25173747 (Version 1)
Quarter: 2025Q2

REPORT INFORMATION
  Report Type: Spontaneous
  Country: US (occurrence: US)
  Receive Date: 20250408
  Receipt Date: 20250408
  Transmission Date: 20250717
  Serious: No
  Sender: MYLAN
  Company Number: US-MYLANLABS-2025M1026812

PATIENT
  Sex: Female

DRUGS (1)
  1. WIXELA INHUB [Suspect]
     Active Substance: FLUTICASONE PROPIONATE\SALMETEROL XINAFOATE
     Indication: Asthma
     Dosage: 250/50 MICROGRAM, BID (MORNING AND NIGHT)
     Dates: start: 20241123

REACTIONS (4)
  - Drug ineffective [Unknown]
  - Device delivery system issue [Unknown]
  - Device malfunction [Unknown]
  - Device mechanical issue [Unknown]
